FAERS Safety Report 8532701-8 (Version None)
Quarter: 2012Q3

REPORT INFORMATION
  Report Type: 
  Country: None (occurrence: None)
  Receive Date: 20120724
  Receipt Date: 20120719
  Transmission Date: 20120928
  Serious: Yes (Hospitalization, Other)
  Sender: FDA-Public Use
  Company Number: PHHY2012JP059612

PATIENT
  Age: 63 Year
  Sex: Female

DRUGS (3)
  1. FEMARA [Suspect]
     Dosage: 2.5 MG, DAILY
     Route: 048
  2. FEMARA [Suspect]
     Indication: BREAST CANCER
     Dosage: 2.5 MG, DAILY
     Route: 048
  3. WARFARIN SODIUM [Concomitant]
     Route: 048

REACTIONS (3)
  - VENOUS HAEMORRHAGE [None]
  - CEREBRAL HAEMORRHAGE [None]
  - OEDEMA PERIPHERAL [None]
